FAERS Safety Report 19245260 (Version 1)
Quarter: 2021Q2

REPORT INFORMATION
  Report Type: Spontaneous
  Country: CA (occurrence: CA)
  Receive Date: 20210511
  Receipt Date: 20210511
  Transmission Date: 20210717
  Serious: Yes (Hospitalization)
  Sender: FDA-Public Use
  Company Number: CA-BAUSCH-BL-2021-014914

PATIENT
  Age: 17 Year
  Sex: Female

DRUGS (3)
  1. PEANUT [ARACHIS HYPOGAEA] [Suspect]
     Active Substance: ALLERGENIC EXTRACT- PEANUT ARACHIS HYPOGAEA
     Dosage: CHALLENGED
     Route: 048
  2. PEANUT [ARACHIS HYPOGAEA] [Suspect]
     Active Substance: ALLERGENIC EXTRACT- PEANUT ARACHIS HYPOGAEA
     Indication: IMMUNE ENHANCEMENT THERAPY
     Route: 048
  3. ERYTHROMYCIN. [Suspect]
     Active Substance: ERYTHROMYCIN
     Indication: OROPHARYNGEAL PAIN
     Route: 048

REACTIONS (1)
  - Food allergy [Recovered/Resolved]
